FAERS Safety Report 6745007-4 (Version None)
Quarter: 2010Q2

REPORT INFORMATION
  Report Type: 
  Country: None (occurrence: None)
  Receive Date: 20100527
  Receipt Date: 20100519
  Transmission Date: 20101027
  Serious: No
  Sender: FDA-Public Use
  Company Number: JP-ROCHE-698209

PATIENT
  Sex: Female
  Weight: 68 kg

DRUGS (19)
  1. TOCILIZUMAB [Suspect]
     Indication: RHEUMATOID ARTHRITIS
     Route: 041
     Dates: start: 20080628, end: 20080628
  2. TOCILIZUMAB [Suspect]
     Route: 041
     Dates: start: 20080725, end: 20080725
  3. TOCILIZUMAB [Suspect]
     Route: 041
     Dates: start: 20080829, end: 20080829
  4. TOCILIZUMAB [Suspect]
     Route: 041
     Dates: start: 20080926, end: 20080926
  5. TOCILIZUMAB [Suspect]
     Route: 041
     Dates: start: 20081024, end: 20081024
  6. TOCILIZUMAB [Suspect]
     Route: 041
     Dates: start: 20081128, end: 20081128
  7. TOCILIZUMAB [Suspect]
     Route: 041
     Dates: start: 20081226, end: 20081226
  8. TOCILIZUMAB [Suspect]
     Route: 041
     Dates: start: 20090123, end: 20090123
  9. TOCILIZUMAB [Suspect]
     Route: 041
     Dates: start: 20090306, end: 20090306
  10. TOCILIZUMAB [Suspect]
     Route: 041
     Dates: start: 20090518, end: 20090518
  11. TOCILIZUMAB [Suspect]
     Route: 041
     Dates: start: 20090617
  12. RIMATIL [Concomitant]
     Route: 048
  13. RHEUMATREX [Concomitant]
     Dosage: NOTE: DIVIDED INTO 2 DOSES
     Route: 048
     Dates: start: 20080126
  14. PREDONINE [Concomitant]
     Route: 048
     Dates: end: 20080926
  15. PREDONINE [Concomitant]
     Route: 048
     Dates: start: 20080927
  16. VOLTAREN [Concomitant]
     Dosage: FORM: PERORAL AGENT
     Route: 048
     Dates: start: 20080516, end: 20080927
  17. CELCOX [Concomitant]
     Route: 048
     Dates: start: 20080928, end: 20081023
  18. CELCOX [Concomitant]
     Route: 048
     Dates: start: 20081024, end: 20090818
  19. LOXONIN [Concomitant]
     Dosage: FORM: PERORAL AGENT
     Route: 048

REACTIONS (1)
  - HYPERTRIGLYCERIDAEMIA [None]
